FAERS Safety Report 16405066 (Version 3)
Quarter: 2019Q2

REPORT INFORMATION
  Report Type: Spontaneous
  Country: US (occurrence: US)
  Receive Date: 20190607
  Receipt Date: 20190621
  Transmission Date: 20190711
  Serious: Yes (Other)
  Sender: FDA-Public Use
  Company Number: US-ASTRAZENECA-2018SF14118

PATIENT
  Age: 18873 Day
  Sex: Male

DRUGS (18)
  1. LISINOPRIL. [Concomitant]
     Active Substance: LISINOPRIL
  2. PREVACID [Suspect]
     Active Substance: LANSOPRAZOLE
     Route: 065
  3. SULINDAC. [Concomitant]
     Active Substance: SULINDAC
  4. NEXIUM [Suspect]
     Active Substance: ESOMEPRAZOLE MAGNESIUM
     Route: 048
     Dates: start: 20140916, end: 20150106
  5. MORPHINE [Concomitant]
     Active Substance: MORPHINE
  6. NEXIUM 24HR [Suspect]
     Active Substance: ESOMEPRAZOLE MAGNESIUM
     Route: 048
  7. PRILOSEC OTC [Suspect]
     Active Substance: OMEPRAZOLE MAGNESIUM
     Route: 048
  8. PROTONIX [Suspect]
     Active Substance: PANTOPRAZOLE SODIUM
     Route: 065
  9. TIZANIDINE. [Concomitant]
     Active Substance: TIZANIDINE
  10. VOLTAREN [Concomitant]
     Active Substance: DICLOFENAC SODIUM
  11. ANDROGEL [Concomitant]
     Active Substance: TESTOSTERONE
  12. AMITIZA [Concomitant]
     Active Substance: LUBIPROSTONE
  13. PRILOSEC [Suspect]
     Active Substance: OMEPRAZOLE MAGNESIUM
     Route: 048
  14. PREVACID 24 HR [Suspect]
     Active Substance: LANSOPRAZOLE
     Route: 065
  15. DEXILANT [Suspect]
     Active Substance: DEXLANSOPRAZOLE
     Route: 065
  16. OXYCODONE [Concomitant]
     Active Substance: OXYCODONE
  17. DICLOFENAC [Concomitant]
     Active Substance: DICLOFENAC
  18. FLUTICASONE. [Concomitant]
     Active Substance: FLUTICASONE

REACTIONS (7)
  - Acute kidney injury [Unknown]
  - End stage renal disease [Unknown]
  - Renal failure [Unknown]
  - Tubulointerstitial nephritis [Unknown]
  - Dyspepsia [Unknown]
  - Chronic kidney disease [Unknown]
  - Renal injury [Unknown]

NARRATIVE: CASE EVENT DATE: 20170802
